FAERS Safety Report 20608174 (Version 1)
Quarter: 2022Q1

REPORT INFORMATION
  Report Type: Spontaneous
  Country: US (occurrence: None)
  Receive Date: 20220317
  Receipt Date: 20220317
  Transmission Date: 20220423
  Serious: Yes (Other)
  Sender: FDA-Public Use
  Company Number: None

PATIENT
  Age: 75 Year
  Sex: Female
  Weight: 59.85 kg

DRUGS (6)
  1. LIDOCAINE 4% PAIN RELIEVING PAD [Suspect]
     Active Substance: LIDOCAINE
     Indication: Pain
     Dosage: OTHER STRENGTH : ?;?OTHER QUANTITY : 5 PATCH(ES);?FREQUENCY : 3 TIMES A DAY;?
     Route: 062
  2. LIDOCAINE 4% PAIN RELIEVING PAD [Suspect]
     Active Substance: LIDOCAINE
     Indication: Tendon rupture
  3. STRATTERA [Concomitant]
     Active Substance: ATOMOXETINE HYDROCHLORIDE
  4. Vitamins D [Concomitant]
  5. VITAMIN B COMPLEX [Concomitant]
     Active Substance: CYANOCOBALAMIN\DEXPANTHENOL\NIACINAMIDE\PYRIDOXINE HYDROCHLORIDE\RIBOFLAVIN 5^-PHOSPHATE SODIUM\THIA
  6. CALCIUM [Concomitant]
     Active Substance: CALCIUM

REACTIONS (4)
  - Application site pruritus [None]
  - Application site erythema [None]
  - Application site vesicles [None]
  - Application site rash [None]

NARRATIVE: CASE EVENT DATE: 20220316
